FAERS Safety Report 25632341 (Version 3)
Quarter: 2025Q3

REPORT INFORMATION
  Report Type: Spontaneous
  Country: US (occurrence: US)
  Receive Date: 20250801
  Receipt Date: 20250912
  Transmission Date: 20251021
  Serious: No
  Sender: PFIZER
  Company Number: US-PFIZER INC-202500152425

PATIENT
  Age: 14 Year
  Sex: Male
  Weight: 47.619 kg

DRUGS (1)
  1. GENOTROPIN [Suspect]
     Active Substance: SOMATROPIN
     Indication: Growth retardation

REACTIONS (3)
  - Device information output issue [Unknown]
  - Device use error [Unknown]
  - Drug dose omission by device [Unknown]
